FAERS Safety Report 25414696 (Version 1)
Quarter: 2025Q2

REPORT INFORMATION
  Report Type: Spontaneous
  Country: DE (occurrence: DE)
  Receive Date: 20250609
  Receipt Date: 20250609
  Transmission Date: 20250716
  Serious: Yes (Other)
  Sender: NOVARTIS
  Company Number: DE-002147023-NVSC2025DE091422

PATIENT
  Sex: Male

DRUGS (1)
  1. GILENYA [Suspect]
     Active Substance: FINGOLIMOD HYDROCHLORIDE
     Indication: Multiple sclerosis
     Dosage: 0.5 MG, QD
     Route: 065
     Dates: start: 2011

REACTIONS (4)
  - Retinal haemorrhage [Unknown]
  - Blindness unilateral [Unknown]
  - Contusion [Unknown]
  - Visual impairment [Unknown]

NARRATIVE: CASE EVENT DATE: 20250602
